FAERS Safety Report 7972832-4 (Version None)
Quarter: 2011Q4

REPORT INFORMATION
  Report Type: 
  Country: None (occurrence: None)
  Receive Date: 20111213
  Receipt Date: 20111208
  Transmission Date: 20120403
  Serious: Yes (Hospitalization)
  Sender: FDA-Public Use
  Company Number: FI-ROCHE-1020567

PATIENT
  Sex: Female

DRUGS (18)
  1. MABTHERA [Suspect]
     Dates: start: 20100303
  2. LANSOPRAZOLE [Concomitant]
     Route: 048
  3. SIBICORT [Concomitant]
  4. THYROXIN [Concomitant]
     Route: 048
  5. MABTHERA [Suspect]
     Dates: start: 20090331
  6. MABTHERA [Suspect]
     Indication: RHEUMATOID ARTHRITIS
     Route: 042
     Dates: start: 20090317
  7. MABTHERA [Suspect]
     Dates: start: 20110223
  8. PREDNISOLONE [Concomitant]
     Route: 048
  9. VITAMIN A PALMITATE [Concomitant]
  10. TREXAN (FINLAND) [Concomitant]
     Route: 048
     Dates: end: 20111102
  11. OXIKLORIN [Concomitant]
     Route: 048
     Dates: end: 20111102
  12. MABTHERA [Suspect]
     Dates: start: 20110309
  13. FLUARIX [Concomitant]
  14. MABTHERA [Suspect]
     Dates: start: 20100215
  15. PNEUMOVAX 23 [Concomitant]
  16. NAPROMETIN [Concomitant]
     Route: 048
  17. DEPRAKINE [Concomitant]
     Route: 048
  18. ACETAMINOPHEN [Concomitant]
     Route: 048

REACTIONS (3)
  - NEUTROPENIA [None]
  - LEUKOPENIA [None]
  - PYREXIA [None]
